FAERS Safety Report 4451954-9 (Version None)
Quarter: 2004Q3

REPORT INFORMATION
  Report Type: 
  Country: None (occurrence: None)
  Receive Date: 20040916
  Receipt Date: 20040905
  Transmission Date: 20050211
  Serious: Yes (Other)
  Sender: FDA-Public Use
  Company Number: 2004062609

PATIENT
  Sex: Male

DRUGS (1)
  1. DRAMAMINE DROWSY FORMULA (DIPHENHYDRINATE) [Suspect]
     Indication: ACCIDENTAL EXPOSURE
     Dosage: 12 TABLETS ONCE, ORAL
     Route: 048
     Dates: start: 20040901, end: 20040901

REACTIONS (6)
  - ABNORMAL BEHAVIOUR [None]
  - ACCIDENTAL EXPOSURE [None]
  - ACCIDENTAL OVERDOSE [None]
  - DEPRESSED LEVEL OF CONSCIOUSNESS [None]
  - EYE ROLLING [None]
  - FALL [None]
